FAERS Safety Report 8377591-1 (Version None)
Quarter: 2012Q2

REPORT INFORMATION
  Report Type: 
  Country: None (occurrence: None)
  Receive Date: 20120522
  Receipt Date: 20120510
  Transmission Date: 20120825
  Serious: Yes (Other)
  Sender: FDA-Public Use
  Company Number: US-BRISTOL-MYERS SQUIBB COMPANY-16584567

PATIENT
  Age: 71 Year
  Sex: Male
  Weight: 84 kg

DRUGS (10)
  1. VITAMIN D [Concomitant]
  2. AMOXAPINE [Concomitant]
     Indication: DEPRESSION
  3. CARVEDILOL [Concomitant]
  4. ASPIRIN [Suspect]
     Dates: start: 20000101
  5. PLAVIX [Suspect]
     Dosage: FILLED ON 17APR2012
     Dates: start: 20000101
  6. DIAZEPAM [Concomitant]
     Indication: FIBROMYALGIA
  7. AMITRIPTYLINE HCL [Concomitant]
     Indication: FIBROMYALGIA
  8. LISINOPRIL [Concomitant]
  9. WARFARIN SODIUM [Suspect]
     Dosage: 3 DAYS A WEEK 4MG 4 DAYS A WEEK
  10. LOVENOX [Suspect]

REACTIONS (3)
  - ANAEMIA [None]
  - GASTROOESOPHAGEAL REFLUX DISEASE [None]
  - HIATUS HERNIA [None]
